FAERS Safety Report 20735853 (Version 1)
Quarter: 2022Q2

REPORT INFORMATION
  Report Type: Spontaneous
  Country: FR (occurrence: FR)
  Receive Date: 20220421
  Receipt Date: 20220421
  Transmission Date: 20220720
  Serious: Yes (Hospitalization)
  Sender: FDA-Public Use
  Company Number: FR-TEVA-2022-FR-2028198

PATIENT
  Age: 18 Year
  Sex: Male

DRUGS (12)
  1. DOXORUBICIN [Suspect]
     Active Substance: DOXORUBICIN
     Indication: Hodgkin^s disease
     Route: 065
  2. BUSULFAN [Interacting]
     Active Substance: BUSULFAN
     Indication: Hodgkin^s disease
     Route: 065
  3. CYTARABINE [Interacting]
     Active Substance: CYTARABINE
     Indication: Hodgkin^s disease
     Route: 065
  4. MELPHALAN [Interacting]
     Active Substance: MELPHALAN
     Indication: Hodgkin^s disease
     Route: 065
  5. VINBLASTINE [Concomitant]
     Active Substance: VINBLASTINE
     Indication: Hodgkin^s disease
     Route: 065
  6. BLEOMYCIN [Concomitant]
     Active Substance: BLEOMYCIN SULFATE
     Indication: Hodgkin^s disease
     Route: 065
  7. DACARBAZINE [Concomitant]
     Active Substance: DACARBAZINE
     Indication: Hodgkin^s disease
     Route: 065
  8. IFOSFAMIDE [Concomitant]
     Active Substance: IFOSFAMIDE
     Indication: Hodgkin^s disease
     Route: 065
  9. NAVELBINE [Concomitant]
     Active Substance: VINORELBINE TARTRATE
     Indication: Hodgkin^s disease
     Route: 065
  10. ETOPOSIDE [Concomitant]
     Active Substance: ETOPOSIDE
     Indication: Hodgkin^s disease
     Route: 065
  11. CARMUSTINE [Concomitant]
     Active Substance: CARMUSTINE
     Indication: Hodgkin^s disease
     Route: 065
  12. Cytosine-arabinosine [Concomitant]
     Indication: Hodgkin^s disease
     Route: 065

REACTIONS (6)
  - Pulmonary arterial hypertension [Recovering/Resolving]
  - Pleuroparenchymal fibroelastosis [Recovering/Resolving]
  - Pneumothorax [Recovering/Resolving]
  - Pulmonary valve incompetence [Recovering/Resolving]
  - Ejection fraction decreased [Unknown]
  - Drug interaction [Unknown]
